FAERS Safety Report 21150060 (Version 1)
Quarter: 2022Q3

REPORT INFORMATION
  Report Type: Spontaneous
  Country: US (occurrence: US)
  Receive Date: 20220729
  Receipt Date: 20220729
  Transmission Date: 20221027
  Serious: No
  Sender: FDA-Public Use
  Company Number: US-NOVOPROD-899387

PATIENT
  Sex: Female

DRUGS (1)
  1. OZEMPIC [Suspect]
     Active Substance: SEMAGLUTIDE
     Indication: Type 2 diabetes mellitus
     Dosage: 1 MG, QW
     Route: 058
     Dates: start: 202109

REACTIONS (5)
  - Urinary tract infection [Unknown]
  - Fungal infection [Unknown]
  - Alopecia [Unknown]
  - Erythema [Unknown]
  - Skin mass [Unknown]

NARRATIVE: CASE EVENT DATE: 20220101
